FAERS Safety Report 15146932 (Version 5)
Quarter: 2019Q2

REPORT INFORMATION
  Report Type: Report from Study
  Country: FR (occurrence: FR)
  Receive Date: 20180716
  Receipt Date: 20190417
  Transmission Date: 20190711
  Serious: Yes (Hospitalization)
  Sender: FDA-Public Use
  Company Number: FR-ROCHE-2154668

PATIENT
  Age: 56 Year
  Sex: Male
  Weight: 88 kg

DRUGS (1)
  1. OMALIZUMAB. [Suspect]
     Active Substance: OMALIZUMAB
     Indication: CHRONIC SPONTANEOUS URTICARIA
     Route: 058
     Dates: start: 20170803, end: 20180503

REACTIONS (17)
  - Bone marrow oedema [Not Recovered/Not Resolved]
  - Intervertebral disc disorder [Not Recovered/Not Resolved]
  - Pain [Unknown]
  - Pelvic pain [Not Recovered/Not Resolved]
  - Urticaria [Not Recovered/Not Resolved]
  - Perthes disease [Not Recovered/Not Resolved]
  - Intervertebral disc protrusion [Not Recovered/Not Resolved]
  - Hypokinesia [Unknown]
  - Myalgia [Not Recovered/Not Resolved]
  - Joint stiffness [Unknown]
  - Weight decreased [Recovered/Resolved]
  - Groin pain [Unknown]
  - Pain in extremity [Not Recovered/Not Resolved]
  - Gait disturbance [Unknown]
  - Muscular weakness [Unknown]
  - Arthralgia [Not Recovered/Not Resolved]
  - Inguinal hernia [Unknown]

NARRATIVE: CASE EVENT DATE: 201710
